FAERS Safety Report 8810638 (Version 1)
Quarter: 2012Q4

REPORT INFORMATION
  Report Type: Spontaneous
  Country: US (occurrence: None)
  Receive Date: 20120924
  Receipt Date: 20120924
  Transmission Date: 20130627
  Serious: Yes (Life-Threatening, Disabling)
  Sender: FDA-Public Use
  Company Number: None

PATIENT
  Age: 56 Year
  Sex: Male
  Weight: 70.31 kg

DRUGS (1)
  1. LEVOFLOXACIN HYDRATE [Suspect]
     Indication: UPPER RESPIRATORY INFECTION
     Route: 048
     Dates: start: 20120715, end: 20120722

REACTIONS (14)
  - Musculoskeletal disorder [None]
  - Vasodilatation [None]
  - Arrhythmia [None]
  - Nodule [None]
  - Nervous system disorder [None]
  - Arthropathy [None]
  - Tremor [None]
  - Insomnia [None]
  - Jaw disorder [None]
  - Vision blurred [None]
  - Rash [None]
  - Muscle twitching [None]
  - Palpitations [None]
  - Thinking abnormal [None]
